FAERS Safety Report 8014068-7 (Version None)
Quarter: 2011Q4

REPORT INFORMATION
  Report Type: 
  Country: None (occurrence: None)
  Receive Date: 20111229
  Receipt Date: 20111102
  Transmission Date: 20120403
  Serious: Yes (Hospitalization)
  Sender: FDA-Public Use
  Company Number: GB-ROCHE-1008716

PATIENT
  Sex: Female
  Weight: 87.1 kg

DRUGS (8)
  1. GABAPENTIN [Concomitant]
  2. ASPIRIN [Concomitant]
  3. MABTHERA [Suspect]
     Indication: B-CELL LYMPHOMA
     Route: 042
     Dates: start: 20110504
  4. SIMVASTATIN [Concomitant]
     Indication: HYPERCHOLESTEROLAEMIA
  5. VINCRISTINE [Suspect]
     Indication: B-CELL LYMPHOMA
     Route: 042
     Dates: start: 20110504
  6. PREDNISOLONE [Suspect]
     Indication: B-CELL LYMPHOMA
     Dosage: ONCE EVRY 5 DAYS
     Route: 048
     Dates: start: 20110504
  7. BUTRANS [Concomitant]
  8. CYCLOPHOSPHAMIDE [Suspect]
     Indication: B-CELL LYMPHOMA
     Route: 042
     Dates: start: 20110504

REACTIONS (1)
  - SPINAL DEFORMITY [None]
